FAERS Safety Report 22660078 (Version 1)
Quarter: 2023Q2

REPORT INFORMATION
  Report Type: Spontaneous
  Country: US (occurrence: US)
  Receive Date: 20230630
  Receipt Date: 20230630
  Transmission Date: 20230721
  Serious: Yes (Hospitalization)
  Sender: FDA-Public Use
  Company Number: US-MYLANLABS-2023M1068698

PATIENT
  Age: 3 Decade
  Sex: Male

DRUGS (10)
  1. CLOZAPINE [Suspect]
     Active Substance: CLOZAPINE
     Indication: Schizoaffective disorder bipolar type
     Dosage: INITIAL DOSE NOT STATED
     Route: 065
  2. CLOZAPINE [Suspect]
     Active Substance: CLOZAPINE
     Dosage: 400 MILLIGRAM, TITRATED UP TO 400MG OVER THE FOLLOWING 3 MONTHS
     Route: 065
  3. LITHIUM [Suspect]
     Active Substance: LITHIUM
     Indication: Schizoaffective disorder bipolar type
     Dosage: 1500 MILLIGRAM, QD
     Route: 065
  4. GABAPENTIN [Concomitant]
     Active Substance: GABAPENTIN
     Indication: Schizoaffective disorder bipolar type
     Dosage: 600 MILLIGRAM, QD
     Route: 065
  5. MELATONIN [Concomitant]
     Active Substance: MELATONIN
     Indication: Product used for unknown indication
     Dosage: 3 MILLIGRAM, QD (AT NIGHT)
     Route: 065
  6. VITAMIN D3 [Concomitant]
     Active Substance: CHOLECALCIFEROL
     Indication: Product used for unknown indication
     Dosage: 2000 INTERNATIONAL UNIT, QD
     Route: 065
  7. GLYCOPYRROLATE [Concomitant]
     Active Substance: GLYCOPYRROLATE
     Indication: Drooling
     Dosage: 1 MILLIGRAM, PRN  (AS NEEDED)
     Route: 065
  8. PANTOPRAZOLE [Concomitant]
     Active Substance: PANTOPRAZOLE
     Indication: Product used for unknown indication
     Dosage: 40 MILLIGRAM, QD
     Route: 065
  9. AMOXICILLIN [Concomitant]
     Active Substance: AMOXICILLIN
     Indication: Tooth disorder
     Dosage: 500 MILLIGRAM, TID, 3 TIMES/D; SINGLE COURSE
     Route: 065
  10. COVID-19 vaccine [Concomitant]
     Indication: COVID-19 immunisation
     Dosage: UNK
     Route: 065

REACTIONS (4)
  - Breakthrough COVID-19 [Recovering/Resolving]
  - Blood immunoglobulin G decreased [Unknown]
  - Leukocytosis [Unknown]
  - Neutrophilia [Unknown]
